FAERS Safety Report 17099682 (Version 1)
Quarter: 2019Q4

REPORT INFORMATION
  Report Type: Spontaneous
  Country: US (occurrence: US)
  Receive Date: 20191106
  Receipt Date: 20191106
  Transmission Date: 20200122
  Serious: Yes (Hospitalization)
  Sender: FDA-Public Use
  Company Number: None

PATIENT
  Age: 76 Year
  Sex: Male

DRUGS (1)
  1. ZYTIGA [Suspect]
     Active Substance: ABIRATERONE ACETATE
     Indication: PROSTATE CANCER
     Dosage: ON HOLD
     Route: 048
     Dates: start: 20190105

REACTIONS (2)
  - Cardiac failure congestive [None]
  - Fluid retention [None]

NARRATIVE: CASE EVENT DATE: 20191020
